FAERS Safety Report 20667208 (Version 2)
Quarter: 2022Q2

REPORT INFORMATION
  Report Type: Report from Study
  Country: None (occurrence: BR)
  Receive Date: 20220404
  Receipt Date: 20220418
  Transmission Date: 20220721
  Serious: Yes (Other)
  Sender: FDA-Public Use
  Company Number: BR-AKCEA THERAPEUTICS, INC.-2022IS003160

PATIENT
  Age: 73 Year
  Sex: Male
  Weight: 75.182 kg

DRUGS (2)
  1. TEGSEDI [Suspect]
     Active Substance: INOTERSEN SODIUM
     Indication: Amyloidosis senile
     Route: 058
     Dates: start: 20151213
  2. DEVICE [Suspect]
     Active Substance: DEVICE

REACTIONS (3)
  - Prostate cancer [Recovered/Resolved]
  - Off label use [Not Recovered/Not Resolved]
  - Vitamin A decreased [Not Recovered/Not Resolved]

NARRATIVE: CASE EVENT DATE: 20151213
